FAERS Safety Report 6221844-X (Version None)
Quarter: 2009Q2

REPORT INFORMATION
  Report Type: 
  Country: None (occurrence: None)
  Receive Date: 20090609
  Receipt Date: 20090605
  Transmission Date: 20091009
  Serious: Yes (Life-Threatening, Hospitalization, Other)
  Sender: FDA-Public Use
  Company Number: 2009004643

PATIENT
  Age: 54 Year
  Sex: Male
  Weight: 88.905 kg

DRUGS (1)
  1. TREANDA [Suspect]
     Indication: CHRONIC LYMPHOCYTIC LEUKAEMIA
     Dosage: 180 MG (180 MG, 1 IN 1 D), INTRAVENOUS
     Route: 042
     Dates: start: 20090305, end: 20090306

REACTIONS (3)
  - AGRANULOCYTOSIS [None]
  - HAEMOGLOBIN DECREASED [None]
  - PLATELET COUNT ABNORMAL [None]
